FAERS Safety Report 8052088-7 (Version None)
Quarter: 2012Q1

REPORT INFORMATION
  Report Type: 
  Country: None (occurrence: None)
  Receive Date: 20120118
  Receipt Date: 20120111
  Transmission Date: 20120608
  Serious: Yes (Other)
  Sender: FDA-Public Use
  Company Number: US-PFIZER INC-2012009535

PATIENT
  Sex: Female
  Weight: 63 kg

DRUGS (6)
  1. LYRICA [Suspect]
     Indication: NEUROPATHY PERIPHERAL
     Dosage: 50 MG, 3X/DAY
     Route: 048
     Dates: start: 20120108, end: 20120110
  2. AMOXICILLIN [Concomitant]
     Indication: SINUSITIS
     Dosage: 1 MG, 2X/DAY
  3. VALIUM [Concomitant]
     Indication: MUSCLE SPASMS
     Dosage: 5 MG, 2X/DAY
     Route: 048
  4. PREDNISONE [Concomitant]
     Indication: SPONDYLITIS
     Dosage: 60 MG, DAILY
     Route: 048
  5. ADVIL LIQUI-GELS [Concomitant]
     Dosage: UNK
     Dates: start: 20111201, end: 20120101
  6. TRAMADOL [Concomitant]
     Indication: PAIN
     Dosage: 500 MG, DAILY

REACTIONS (1)
  - DIPLOPIA [None]
